FAERS Safety Report 7888150-9 (Version None)
Quarter: 2011Q4

REPORT INFORMATION
  Report Type: 
  Country: None (occurrence: None)
  Receive Date: 20111103
  Receipt Date: 20111022
  Transmission Date: 20120403
  Serious: Yes (Hospitalization)
  Sender: FDA-Public Use
  Company Number: US-BAYER-201041588NA

PATIENT
  Age: 24 Year
  Sex: Female
  Weight: 52.154 kg

DRUGS (7)
  1. GAS-X [Concomitant]
  2. YASMIN [Suspect]
     Dosage: UNK UNK, UNK
     Route: 048
     Dates: start: 20020501, end: 20030801
  3. ROLAIDS [Concomitant]
  4. YAZ [Suspect]
     Dosage: UNK
     Dates: start: 20060101, end: 20060101
  5. YASMIN [Suspect]
     Dosage: UNK
     Dates: start: 20060101, end: 20060101
  6. MAGNESIUM HYDROXIDE TAB [Concomitant]
  7. YAZ [Suspect]
     Dosage: UNK UNK, UNK
     Route: 048
     Dates: start: 20020501, end: 20030801

REACTIONS (3)
  - GALLBLADDER INJURY [None]
  - CHOLECYSTITIS ACUTE [None]
  - CHOLELITHIASIS [None]
